FAERS Safety Report 8991063 (Version 1)
Quarter: 2012Q4

REPORT INFORMATION
  Report Type: Spontaneous
  Country: DK (occurrence: None)
  Receive Date: 20121220
  Receipt Date: 20121220
  Transmission Date: 20130627
  Serious: Yes (Other)
  Sender: FDA-Public Use
  Company Number: 2012MA014160

PATIENT
  Age: 62 Year
  Sex: Male

DRUGS (2)
  1. OXALIPLATIN FOR INJECTION USP 100MG SINGLE-DOSE VIALS (ATLLC) (OXALIPLATIN) [Suspect]
     Indication: COLORECTAL CARCINOMA
     Route: 042
     Dates: start: 20121203, end: 20121203
  2. CAPECITABINE [Concomitant]

REACTIONS (3)
  - Burning sensation [None]
  - Fatigue [None]
  - Malaise [None]
